FAERS Safety Report 6201860-4 (Version None)
Quarter: 2009Q2

REPORT INFORMATION
  Report Type: 
  Country: None (occurrence: None)
  Receive Date: 20090520
  Receipt Date: 20090512
  Transmission Date: 20091009
  Serious: Yes (Death)
  Sender: FDA-Public Use
  Company Number: 1000006261

PATIENT
  Age: 70 Year
  Sex: Female
  Weight: 88.905 kg

DRUGS (11)
  1. RIMANTADINE HYDROCHLORIDE [Suspect]
     Indication: INFLUENZA
     Dosage: 200 MG (100 MG, 2 IN 1 D), ORAL
     Route: 048
     Dates: start: 20090406, end: 20090413
  2. TAMIFLU [Suspect]
     Indication: INFLUENZA
     Dosage: 150 MG (75 MG, 2 IN 1 D), ORAL
     Route: 048
     Dates: start: 20090406, end: 20090411
  3. GEMFIBROZIL [Concomitant]
  4. GLIPIZIDE [Concomitant]
  5. HYDROCHLOROTHIAZIDE [Concomitant]
  6. LANOXIN [Concomitant]
  7. LEVOXYL [Concomitant]
  8. LISINOPRIL [Concomitant]
  9. NORVASC [Concomitant]
  10. PROPRANOLOL HYDROCHLORIDE [Concomitant]
  11. ZANTAC [Concomitant]

REACTIONS (4)
  - FALL [None]
  - HAEMOLYTIC ANAEMIA [None]
  - HYPERKALAEMIA [None]
  - MALAISE [None]
